FAERS Safety Report 7748951-4 (Version None)
Quarter: 2011Q3

REPORT INFORMATION
  Report Type: 
  Country: None (occurrence: None)
  Receive Date: 20110914
  Receipt Date: 20110905
  Transmission Date: 20111222
  Serious: Yes (Other)
  Sender: FDA-Public Use
  Company Number: ZA-BAYER-2011-082311

PATIENT
  Age: 2 Month

DRUGS (1)
  1. MIRENA [Suspect]
     Dosage: UNK
     Route: 064
     Dates: start: 20101201, end: 20110617

REACTIONS (2)
  - PREMATURE BABY [None]
  - NECROTISING ENTEROCOLITIS NEONATAL [None]
